FAERS Safety Report 7781371-5 (Version None)
Quarter: 2011Q3

REPORT INFORMATION
  Report Type: 
  Country: None (occurrence: None)
  Receive Date: 20110927
  Receipt Date: 20110925
  Transmission Date: 20111222
  Serious: Yes (Death, Hospitalization, Other)
  Sender: FDA-Public Use
  Company Number: CA-PFIZER INC-2011207838

PATIENT
  Age: 61 Year
  Sex: Female
  Weight: 66 kg

DRUGS (25)
  1. MOMETASONE FUROATE [Suspect]
     Dosage: 0.05 %,  2 SPRAYS TWICE DAILY
  2. LEVOTHYROXINE [Suspect]
     Dosage: 50 UG, DAILY
  3. OMEPRAZOLE [Suspect]
     Dosage: 20 MG, 2X/DAY
  4. TRAZODONE HCL [Suspect]
     Dosage: 75 MG, 2X/DAY
  5. HYDROXYZINE HCL [Suspect]
     Dosage: 25 MG, 2X/DAY
  6. CYCLOBENZAPRINE [Suspect]
     Dosage: 10 MG, AS NEEDED
  7. HALOPERIDOL [Suspect]
     Dosage: 20 MG, AT BEDTIME
  8. FLUCONAZOLE [Suspect]
     Dosage: 150 MG, DAILY,  5-6 TIMES IN PAST 6 MONTHS
  9. ESTROGENS CONJUGATED [Suspect]
     Dosage: 1.3 MG, DAILY
  10. HYDROXYCHLOROQUINE SULFATE [Suspect]
     Dosage: 200 MG, 2X/DAY
  11. RISPERIDONE [Suspect]
     Dosage: 2 MG IN THE MORNING, 3 MG AT BEDTIME
  12. PREDNISONE [Suspect]
     Dosage: 7.5 MG, 1X/DAY
  13. ALBUTEROL [Suspect]
     Dosage: 100 UG, AS NEEDED
  14. BACTRIM [Suspect]
     Dosage: 160/800 UG DAILY FOR THE PAST 3 MONTHS
  15. FUROSEMIDE [Suspect]
     Dosage: 40 MG, DAILY
  16. LORAZEPAM [Concomitant]
     Dosage: 2 MG, AT BED TIME
  17. TRAZODONE HCL [Suspect]
     Dosage: 200 MG, DAILY, AT BEDTIME
  18. DESIPRAMINE HCL [Suspect]
     Dosage: 25 MG, 2X/DAY
  19. QUETIAPINE FUMARATE [Suspect]
     Dosage: 400 MG/DAY, AT BEDTIME
  20. CELECOXIB [Suspect]
     Dosage: 200 MG, 2X/DAY
  21. ATORVASTATIN CALCIUM [Concomitant]
     Dosage: 10 MG, DAILY
  22. SUMATRIPTAN SUCCINATE [Suspect]
     Dosage: 50 MG, AS NEEDED
  23. BUDESONIDE [Suspect]
     Dosage: 200 UG, 2 INHALATIONS DAILY
  24. ALENDRONATE SODIUM [Suspect]
     Dosage: 70 MG, WEEKLY
  25. LOPERAMIDE [Suspect]
     Dosage: 2 MG, (100 TABLETS/MONTH) AS NEEDED

REACTIONS (26)
  - LIVEDO RETICULARIS [None]
  - HEART RATE IRREGULAR [None]
  - ABDOMINAL DISTENSION [None]
  - ANXIETY [None]
  - DEPRESSED LEVEL OF CONSCIOUSNESS [None]
  - ASPIRATION [None]
  - RHABDOMYOLYSIS [None]
  - NEUROLEPTIC MALIGNANT SYNDROME [None]
  - CYANOSIS [None]
  - ELECTROLYTE IMBALANCE [None]
  - MALAISE [None]
  - BREATH SOUNDS ABNORMAL [None]
  - RENAL FAILURE [None]
  - RESPIRATORY FAILURE [None]
  - AUTONOMIC NERVOUS SYSTEM IMBALANCE [None]
  - FALL [None]
  - CONTUSION [None]
  - PERIPHERAL COLDNESS [None]
  - TACHYCARDIA [None]
  - SEPTIC SHOCK [None]
  - GENERAL PHYSICAL HEALTH DETERIORATION [None]
  - SEROTONIN SYNDROME [None]
  - TACHYPNOEA [None]
  - MENTAL IMPAIRMENT [None]
  - PARKINSONISM [None]
  - LEUKOCYTOSIS [None]
